FAERS Safety Report 7764215-7 (Version None)
Quarter: 2011Q3

REPORT INFORMATION
  Report Type: 
  Country: None (occurrence: None)
  Receive Date: 20110916
  Receipt Date: 20110905
  Transmission Date: 20111222
  Serious: Yes (Other)
  Sender: FDA-Public Use
  Company Number: 1000023247

PATIENT
  Age: 61 Year
  Sex: Female

DRUGS (5)
  1. MEMANTINE HCL [Suspect]
     Indication: DEMENTIA ALZHEIMER'S TYPE
     Dosage: 5 MG (5 MG, 1 IN 1 D), ORAL; 10 MG (10 MG, 1 IN 1 D), ORAL; 15 (15 MG, 1 IN 1 D), ORAL
     Route: 048
     Dates: start: 20110701, end: 20110707
  2. MEMANTINE HCL [Suspect]
     Indication: DEMENTIA ALZHEIMER'S TYPE
     Dosage: 5 MG (5 MG, 1 IN 1 D), ORAL; 10 MG (10 MG, 1 IN 1 D), ORAL; 15 (15 MG, 1 IN 1 D), ORAL
     Route: 048
     Dates: start: 20110708, end: 20110714
  3. MEMANTINE HCL [Suspect]
     Indication: DEMENTIA ALZHEIMER'S TYPE
     Dosage: 5 MG (5 MG, 1 IN 1 D), ORAL; 10 MG (10 MG, 1 IN 1 D), ORAL; 15 (15 MG, 1 IN 1 D), ORAL
     Route: 048
     Dates: start: 20110624, end: 20110630
  4. MEMANTINE HYDROCHLORIDE [Suspect]
     Indication: DEMENTIA ALZHEIMER'S TYPE
     Dosage: 20 MG (20 MG, 1 IN 1 D), ORAL
     Route: 048
     Dates: start: 20110715, end: 20110722
  5. ARICEPT [Concomitant]

REACTIONS (3)
  - HICCUPS [None]
  - CONSTIPATION [None]
  - DECREASED APPETITE [None]
